FAERS Safety Report 7654066-6 (Version None)
Quarter: 2011Q3

REPORT INFORMATION
  Report Type: 
  Country: None (occurrence: None)
  Receive Date: 20110802
  Receipt Date: 20110802
  Transmission Date: 20111222
  Serious: Yes (Hospitalization)
  Sender: FDA-Public Use
  Company Number: None

PATIENT
  Age: 74 Year
  Weight: 74.1 kg

DRUGS (11)
  1. TEMODAR [Suspect]
     Indication: SARCOMA
     Dosage: 250MG PO
     Route: 048
     Dates: start: 20110715
  2. METHOXYAMINE [Suspect]
     Indication: SARCOMA
     Dosage: 54MG IV
     Route: 042
     Dates: start: 20110718
  3. IMODIUM [Concomitant]
  4. DIGOXIN [Concomitant]
  5. HYDROCHLOROTHIAZIDE [Concomitant]
  6. COUMADIN [Concomitant]
  7. LIPITOR [Concomitant]
  8. LISINOPRIL [Concomitant]
  9. ZOFRAN [Concomitant]
  10. METFORMIN HCL [Concomitant]
  11. FOSAMAX [Concomitant]

REACTIONS (5)
  - TACHYCARDIA [None]
  - PNEUMOTHORAX [None]
  - OXYGEN SATURATION DECREASED [None]
  - PLEURAL EFFUSION [None]
  - PULMONARY EMBOLISM [None]
